FAERS Safety Report 25071870 (Version 1)
Quarter: 2025Q1

REPORT INFORMATION
  Report Type: Report from Study
  Country: CA (occurrence: CA)
  Receive Date: 20250313
  Receipt Date: 20250313
  Transmission Date: 20250409
  Serious: Yes (Other)
  Sender: JOHNSON AND JOHNSON
  Company Number: CA-JNJFOC-20220928340

PATIENT
  Age: 56 Year
  Sex: Female
  Weight: 81 kg

DRUGS (5)
  1. REMICADE [Suspect]
     Active Substance: INFLIXIMAB
     Indication: Crohn^s disease
     Dosage: REINDUCTION
     Route: 041
     Dates: start: 20220927
  2. REMICADE [Suspect]
     Active Substance: INFLIXIMAB
     Route: 041
     Dates: start: 20200221
  3. REMICADE [Suspect]
     Active Substance: INFLIXIMAB
     Dosage: WEEK 2, 6 AND EVERY 4 WEEKS.
     Route: 041
  4. REMICADE [Suspect]
     Active Substance: INFLIXIMAB
     Route: 041
  5. REMICADE [Suspect]
     Active Substance: INFLIXIMAB
     Route: 041

REACTIONS (4)
  - Crohn^s disease [Unknown]
  - Carpal tunnel syndrome [Unknown]
  - Influenza [Recovering/Resolving]
  - Off label use [Unknown]

NARRATIVE: CASE EVENT DATE: 20220927
